FAERS Safety Report 8499806 (Version 6)
Quarter: 2012Q4

REPORT INFORMATION
  Report Type: 
  Country: US (occurrence: US)
  Receive Date: 20120409
  Receipt Date: 20121101
  Transmission Date: 20130627
  Serious: Yes (Disabling, Other)
  Sender: FDA-Public Use
  Company Number: US-ROCHE-794040

PATIENT
  Age: 24 Year
  Sex: Female
  Weight: 72.64 kg

DRUGS (5)
  1. ACCUTANE [Suspect]
     Indication: ACNE
     Route: 048
     Dates: start: 20071101, end: 20080430
  2. VITAMIN C [Concomitant]
  3. SEPTRA DS [Concomitant]
  4. ONDANSETRON [Concomitant]
  5. ACETAMINOPHEN/HYDROCODONE [Concomitant]

REACTIONS (17)
  - Depression [Unknown]
  - Inflammatory bowel disease [Unknown]
  - Irritable bowel syndrome [Unknown]
  - Suicidal ideation [Unknown]
  - Affective disorder [Unknown]
  - Post-traumatic stress disorder [Unknown]
  - Hot flush [Unknown]
  - Palpitations [Unknown]
  - Abdominal pain [Unknown]
  - Pelvic pain [Unknown]
  - Nausea [Unknown]
  - Dermatitis [Unknown]
  - Arthralgia [Unknown]
  - Joint swelling [Unknown]
  - Insomnia [Recovering/Resolving]
  - Headache [Unknown]
  - Dysuria [Unknown]
